FAERS Safety Report 7424666-7 (Version None)
Quarter: 2011Q2

REPORT INFORMATION
  Report Type: 
  Country: None (occurrence: None)
  Receive Date: 20110419
  Receipt Date: 20100116
  Transmission Date: 20111010
  Serious: Yes (Death, Hospitalization, Other)
  Sender: FDA-Public Use
  Company Number: US-BAYER-201011340NA

PATIENT
  Age: 77 Year
  Sex: Male
  Weight: 72.562 kg

DRUGS (36)
  1. TRASYLOL [Suspect]
     Indication: CORONARY ARTERY BYPASS
     Dates: start: 20070307
  2. METOPROLOL SUCCINATE [Concomitant]
     Dosage: 25MG IN THE EVENING
     Route: 048
     Dates: end: 20070305
  3. MULTI-VITAMIN [Concomitant]
     Dosage: DAILY
     Route: 048
     Dates: end: 20070305
  4. BETA BLOCKING AGENTS AND VASODILATORS [Concomitant]
  5. XANAX [Concomitant]
     Dosage: 0.5 MG, UNK
     Route: 048
     Dates: start: 20070305
  6. AMBIEN [Concomitant]
     Dosage: 5 MG, UNK
     Route: 048
     Dates: start: 20070305
  7. RED BLOOD CELLS [Concomitant]
     Dosage: 8 U, UNK
     Route: 042
     Dates: start: 20070307
  8. ROCEPHIN [Concomitant]
  9. RANEXA [Concomitant]
     Dosage: 500 MG, UNK
     Route: 048
     Dates: end: 20070305
  10. PLASMA [Concomitant]
     Dosage: 4 U, UNK
     Dates: start: 20070307
  11. PLATELETS [Concomitant]
     Dosage: 1 U, UNK
     Route: 042
     Dates: start: 20070307
  12. DARVON [Concomitant]
     Dosage: 65 MG, UNK
     Dates: end: 20070305
  13. DOPAMINE HCL [Concomitant]
     Dosage: DRIP AFTER RESURGERY
     Route: 041
  14. AMLODIPINE [Concomitant]
     Dosage: 5 MG, UNK
     Route: 048
     Dates: start: 20070305
  15. SIMVASTATIN [Concomitant]
     Dosage: 10 MG, UNK
     Route: 048
     Dates: start: 20070305
  16. MANNITOL [Concomitant]
     Dosage: UNK
     Route: 042
     Dates: start: 20070305
  17. LASIX [Concomitant]
     Dosage: UNK
  18. PRILOSEC [Concomitant]
     Dosage: 20 MG, HS
     Route: 048
     Dates: end: 20070305
  19. ADVIL [IBUPROFEN] [Concomitant]
     Dosage: 200 MG, PRN
     Route: 048
     Dates: end: 20070305
  20. LIDOCAINE [Concomitant]
     Dosage: 1 AMPOULE
  21. LOVENOX [Concomitant]
     Dosage: 80 MG, UNK
     Route: 058
     Dates: start: 20070305
  22. ANCEF [Concomitant]
     Dosage: 1 G, UNK
     Route: 042
     Dates: start: 20070305
  23. LOVASTATIN [Concomitant]
     Dosage: 20 MG, HS
     Route: 048
     Dates: end: 20070305
  24. DIFLUCAN [Concomitant]
  25. TUMS (NOS) [Concomitant]
  26. EPINEPHRINE [Concomitant]
     Dosage: DRIP AFTER RESURGERY
     Route: 041
  27. METOPROLOL SUCCINATE [Concomitant]
     Dosage: 50MG IN THE MORNING
     Route: 048
     Dates: end: 20070305
  28. VANCOMYCIN [Concomitant]
  29. DARVOCET-N 50 [Concomitant]
     Dosage: UNK
     Route: 048
     Dates: start: 20070305
  30. ACCUPRIL [Concomitant]
     Dosage: 10 MG, BID
     Route: 048
     Dates: end: 20070305
  31. GLUCOSAMINE [GLUCOSAMINE SULFATE] [Concomitant]
     Dosage: UNK UNK, QD
     Route: 048
     Dates: end: 20070305
  32. CIPRO [Concomitant]
  33. EPINEPHRINE [Concomitant]
     Dosage: 1 AMPULE TWICE
  34. LISINOPRIL [Concomitant]
     Dosage: 10 MG, UNK
     Route: 048
     Dates: start: 20070305, end: 20070307
  35. LOPRESSOR [Concomitant]
     Dosage: 5 MG, UNK
     Route: 042
     Dates: start: 20070305
  36. HEPARIN [Concomitant]
     Dosage: UNK
     Route: 042
     Dates: start: 20070305

REACTIONS (14)
  - DEATH [None]
  - ORGAN FAILURE [None]
  - UNEVALUABLE EVENT [None]
  - PAIN [None]
  - INJURY [None]
  - CARDIAC DISORDER [None]
  - ANXIETY [None]
  - RENAL INJURY [None]
  - DEPRESSION [None]
  - RENAL FAILURE [None]
  - CEREBROVASCULAR ACCIDENT [None]
  - RENAL IMPAIRMENT [None]
  - ANHEDONIA [None]
  - FEAR [None]
